FAERS Safety Report 25797499 (Version 1)
Quarter: 2025Q3

REPORT INFORMATION
  Report Type: Spontaneous
  Country: EU (occurrence: EU)
  Receive Date: 20250912
  Receipt Date: 20250912
  Transmission Date: 20251020
  Serious: Yes (Other)
  Sender: AUROBINDO
  Company Number: EU-AEMPS-1746039

PATIENT
  Sex: Female

DRUGS (4)
  1. GABAPENTIN [Suspect]
     Active Substance: GABAPENTIN
     Indication: Product used for unknown indication
     Dosage: 1200 MILLIGRAM, ONCE A DAY
     Route: 048
     Dates: start: 20250615, end: 20250811
  2. CINACALCET [Concomitant]
     Active Substance: CINACALCET
     Indication: Product used for unknown indication
     Dosage: 120 MILLIGRAM, ONCE A DAY
     Route: 048
     Dates: start: 20250615, end: 20250811
  3. CINACALCET [Concomitant]
     Active Substance: CINACALCET
     Dosage: 30 MILLIGRAM, ONCE A DAY
     Route: 048
     Dates: start: 20250615
  4. GABAPENTIN [Concomitant]
     Active Substance: GABAPENTIN
     Indication: Product used for unknown indication
     Dosage: 300 MILLIGRAM, ONCE A DAY
     Route: 048

REACTIONS (2)
  - Hypertensive crisis [Recovered/Resolved]
  - Increased dose administered [Recovered/Resolved]

NARRATIVE: CASE EVENT DATE: 20250615
